FAERS Safety Report 25523388 (Version 1)
Quarter: 2025Q3

REPORT INFORMATION
  Report Type: Spontaneous
  Country: EU (occurrence: EU)
  Receive Date: 20250707
  Receipt Date: 20250707
  Transmission Date: 20251021
  Serious: Yes (Hospitalization, Other)
  Sender: HIKMA
  Company Number: None

PATIENT
  Age: 79 Year
  Sex: Male
  Weight: 66 kg

DRUGS (3)
  1. BAVENCIO [Suspect]
     Active Substance: AVELUMAB
     Indication: Prostate cancer metastatic
     Route: 042
     Dates: start: 20250404, end: 20250404
  2. CARBOPLATIN [Suspect]
     Active Substance: CARBOPLATIN
     Indication: Prostate cancer metastatic
     Route: 042
     Dates: start: 20250108, end: 20250319
  3. GEMCITABINE [Suspect]
     Active Substance: GEMCITABINE
     Indication: Prostate cancer metastatic
     Route: 042
     Dates: start: 20250108, end: 20250319

REACTIONS (1)
  - Pneumonia [Recovered/Resolved]

NARRATIVE: CASE EVENT DATE: 20250404
